FAERS Safety Report 15684751 (Version 2)
Quarter: 2018Q4

REPORT INFORMATION
  Report Type: Report from Study
  Country: US (occurrence: US)
  Receive Date: 20181204
  Receipt Date: 20181212
  Transmission Date: 20190205
  Serious: Yes (Hospitalization)
  Sender: FDA-Public Use
  Company Number: US-GILEAD-2018-0367240

PATIENT
  Age: 74 Year
  Sex: Female

DRUGS (4)
  1. AMBRISENTAN [Suspect]
     Active Substance: AMBRISENTAN
     Dosage: 5 MG
     Route: 065
  2. OXYGEN. [Concomitant]
     Active Substance: OXYGEN
  3. AMBRISENTAN [Suspect]
     Active Substance: AMBRISENTAN
     Indication: PRODUCT USED FOR UNKNOWN INDICATION
     Dosage: 10 MG, UNK
     Route: 065
     Dates: start: 20111108
  4. LYRICA [Suspect]
     Active Substance: PREGABALIN
     Indication: PRODUCT USED FOR UNKNOWN INDICATION
     Route: 065

REACTIONS (13)
  - Unevaluable event [Not Recovered/Not Resolved]
  - Fatigue [Unknown]
  - Respiratory rate decreased [Unknown]
  - Malaise [Not Recovered/Not Resolved]
  - Intentional product use issue [Recovered/Resolved]
  - Dizziness [Not Recovered/Not Resolved]
  - Pulmonary function test decreased [Unknown]
  - Dyspnoea [Not Recovered/Not Resolved]
  - Oropharyngeal pain [Not Recovered/Not Resolved]
  - Feeling abnormal [Not Recovered/Not Resolved]
  - Off label use [Not Recovered/Not Resolved]
  - Intentional product use issue [Not Recovered/Not Resolved]
  - Sinusitis [Unknown]

NARRATIVE: CASE EVENT DATE: 201810
